FAERS Safety Report 5923465-2 (Version None)
Quarter: 2008Q4

REPORT INFORMATION
  Report Type: 
  Country: None (occurrence: None)
  Receive Date: 20081020
  Receipt Date: 20081013
  Transmission Date: 20090506
  Serious: Yes (Hospitalization, Other)
  Sender: FDA-Public Use
  Company Number: US-BAYER-200812075BCC

PATIENT
  Age: 70 Year
  Sex: Female
  Weight: 75 kg

DRUGS (9)
  1. ALEVE (CAPLET) [Suspect]
     Indication: BACK PAIN
     Route: 048
     Dates: start: 20071201, end: 20080513
  2. UNKNOWN CALCIUM PRODUCT [Suspect]
     Indication: VITAMIN SUPPLEMENTATION
  3. DARVOCET [Concomitant]
  4. ZOLOFT [Concomitant]
  5. NEXIUM [Concomitant]
  6. SLEEP AID [Concomitant]
  7. SIMVASTATIN [Concomitant]
  8. VITAMINS [Concomitant]
  9. STOOL SOFTENER NOS [Concomitant]

REACTIONS (11)
  - ABDOMINAL PAIN [None]
  - BACK PAIN [None]
  - BLOOD GLUCOSE FLUCTUATION [None]
  - COELIAC DISEASE [None]
  - CONSTIPATION [None]
  - DIARRHOEA [None]
  - FREQUENT BOWEL MOVEMENTS [None]
  - HYPERHIDROSIS [None]
  - PANCREATIC CYST [None]
  - TREMOR [None]
  - WEIGHT DECREASED [None]
